FAERS Safety Report 18014584 (Version 1)
Quarter: 2020Q3

REPORT INFORMATION
  Report Type: Spontaneous
  Country: US (occurrence: US)
  Receive Date: 20200713
  Receipt Date: 20200713
  Transmission Date: 20201103
  Serious: No
  Sender: FDA-Public Use
  Company Number: None

PATIENT
  Age: 75 Year
  Sex: Female
  Weight: 76.95 kg

DRUGS (18)
  1. DITROPAN XL [Concomitant]
     Active Substance: OXYBUTYNIN CHLORIDE
  2. REMERON [Concomitant]
     Active Substance: MIRTAZAPINE
  3. FLOVENT HFA [Concomitant]
     Active Substance: FLUTICASONE PROPIONATE
  4. LORAZEPAM. [Concomitant]
     Active Substance: LORAZEPAM
  5. BACTRIM DS [Concomitant]
     Active Substance: SULFAMETHOXAZOLE\TRIMETHOPRIM
  6. COREG [Concomitant]
     Active Substance: CARVEDILOL
  7. NORVASC [Concomitant]
     Active Substance: AMLODIPINE BESYLATE
  8. CAPECITABINE. [Suspect]
     Active Substance: CAPECITABINE
     Indication: NEOPLASM MALIGNANT
     Route: 048
     Dates: start: 20200316, end: 20200713
  9. CELEXA [Concomitant]
     Active Substance: CITALOPRAM HYDROBROMIDE
  10. CRESTOR [Concomitant]
     Active Substance: ROSUVASTATIN CALCIUM
  11. ZOMETA [Concomitant]
     Active Substance: ZOLEDRONIC ACID
  12. CHLORHTALIDONE [Concomitant]
  13. FASLODEX [Concomitant]
     Active Substance: FULVESTRANT
  14. OMEPRAZOLE. [Concomitant]
     Active Substance: OMEPRAZOLE
  15. PROAIR HFA [Concomitant]
     Active Substance: ALBUTEROL SULFATE
  16. VITAMIN D3 [Concomitant]
     Active Substance: CHOLECALCIFEROL
  17. CELEBREX [Concomitant]
     Active Substance: CELECOXIB
  18. LISINOPRIL. [Concomitant]
     Active Substance: LISINOPRIL

REACTIONS (1)
  - Disease progression [None]

NARRATIVE: CASE EVENT DATE: 20200713
